FAERS Safety Report 10017535 (Version 2)
Quarter: 2014Q2

REPORT INFORMATION
  Report Type: Spontaneous
  Country: US (occurrence: US)
  Receive Date: 20140318
  Receipt Date: 20140521
  Transmission Date: 20141212
  Serious: Yes (Other)
  Sender: FDA-Public Use
  Company Number: US-RB-063872-14

PATIENT
  Age: 82 Year
  Sex: Female

DRUGS (1)
  1. MUCINEX FAST MAX MAXIMUM STRENGTH SEVERE CONGESTION AND COUGH CAPLETS [Suspect]
     Indication: PRODUCT USED FOR UNKNOWN INDICATION
     Dosage: 2 CAPLETS 2 TIMES, WITH 4 OR 5 HOURS IN BETWEEN DOSES ON 06-MAR-2014, 1 CAPLET ON 07-MAR-2014.
     Route: 048
     Dates: start: 20140306

REACTIONS (4)
  - Dyskinesia [Recovered/Resolved]
  - Disorientation [Unknown]
  - Muscle twitching [Unknown]
  - Dizziness [Unknown]
